FAERS Safety Report 5710432-7 (Version None)
Quarter: 2008Q2

REPORT INFORMATION
  Report Type: 
  Country: None (occurrence: None)
  Receive Date: 20080418
  Receipt Date: 20080407
  Transmission Date: 20081010
  Serious: Yes (Other)
  Sender: FDA-Public Use
  Company Number: US-PFIZER INC-2008032792

PATIENT
  Age: 39 Year
  Sex: Male

DRUGS (3)
  1. HYDROCORTISONE SODIUM SUCCINATE [Suspect]
     Route: 051
  2. PREDNISONE [Suspect]
     Route: 048
  3. ACTH [Suspect]

REACTIONS (7)
  - ASPARTATE AMINOTRANSFERASE INCREASED [None]
  - CARDIAC FAILURE CONGESTIVE [None]
  - HYPERTENSION [None]
  - HYPERTHERMIA [None]
  - MYOCARDIAL ISCHAEMIA [None]
  - PHAEOCHROMOCYTOMA [None]
  - PULMONARY OEDEMA [None]
